FAERS Safety Report 8136219-6 (Version None)
Quarter: 2012Q1

REPORT INFORMATION
  Report Type: 
  Country: None (occurrence: None)
  Receive Date: 20120214
  Receipt Date: 20120209
  Transmission Date: 20120608
  Serious: Yes (Other)
  Sender: FDA-Public Use
  Company Number: US-JNJFOC-20120206482

PATIENT
  Sex: Female

DRUGS (1)
  1. PRECISE EXTRA STRENGTH PAIN RELIEVING CREAM [Suspect]
     Indication: ACCIDENTAL EXPOSURE
     Route: 047
     Dates: start: 20120208, end: 20120208

REACTIONS (7)
  - EYE PAIN [None]
  - OCULAR HYPERAEMIA [None]
  - ACCIDENTAL EXPOSURE [None]
  - EYE SWELLING [None]
  - NAUSEA [None]
  - VISUAL ACUITY REDUCED [None]
  - EYE IRRITATION [None]
